FAERS Safety Report 13401311 (Version 2)
Quarter: 2018Q3

REPORT INFORMATION
  Report Type: Spontaneous
  Country: US (occurrence: US)
  Receive Date: 20170404
  Receipt Date: 20180706
  Transmission Date: 20181010
  Serious: No
  Sender: FDA-Public Use
  Company Number: US-ALLERGAN-1710037US

PATIENT
  Age: 26 Year
  Sex: Male
  Weight: 96.6 kg

DRUGS (12)
  1. BENZTROPINE. [Concomitant]
     Active Substance: BENZTROPINE
     Indication: PRODUCT USED FOR UNKNOWN INDICATION
     Dosage: 0.5 MG, BID
     Route: 065
  2. CLONAZEPAM. [Concomitant]
     Active Substance: CLONAZEPAM
     Dosage: 0.5 MG, BID
     Route: 065
  3. LAMICTAL [Concomitant]
     Active Substance: LAMOTRIGINE
     Indication: PRODUCT USED FOR UNKNOWN INDICATION
     Dosage: 250 MG, QD
     Route: 065
  4. VRAYLAR [Suspect]
     Active Substance: CARIPRAZINE
     Dosage: 4.5 MG, QD
     Route: 048
  5. LAMICTAL [Concomitant]
     Active Substance: LAMOTRIGINE
     Dosage: 200 MG, QD
     Route: 065
  6. PRAZOSIN. [Concomitant]
     Active Substance: PRAZOSIN
     Dosage: 4 MG, QHS
     Route: 065
  7. BUSPIRONE [Concomitant]
     Active Substance: BUSPIRONE HYDROCHLORIDE
     Indication: PRODUCT USED FOR UNKNOWN INDICATION
     Dosage: 15 MG, BID
     Route: 065
  8. VRAYLAR [Suspect]
     Active Substance: CARIPRAZINE
     Indication: BIPOLAR DISORDER
     Dosage: 6 MG, QD
     Route: 048
  9. CLONAZEPAM. [Concomitant]
     Active Substance: CLONAZEPAM
     Indication: PRODUCT USED FOR UNKNOWN INDICATION
     Dosage: 1 MG, BID, PRN
     Route: 065
  10. PRAZOSIN. [Concomitant]
     Active Substance: PRAZOSIN
     Indication: PRODUCT USED FOR UNKNOWN INDICATION
     Dosage: 2 MG, QAM
     Route: 065
  11. VRAYLAR [Suspect]
     Active Substance: CARIPRAZINE
     Dosage: 3 MG, QD
     Route: 048
  12. VRAYLAR [Suspect]
     Active Substance: CARIPRAZINE
     Dosage: 1.5 MG, QD
     Route: 048
     Dates: start: 20161209

REACTIONS (21)
  - Hearing disability [Unknown]
  - Depressed mood [Unknown]
  - Drug ineffective [Unknown]
  - Mood swings [Recovered/Resolved]
  - Anger [Unknown]
  - Hypomania [Recovered/Resolved]
  - Hepatic enzyme increased [Unknown]
  - Dizziness [Recovered/Resolved]
  - Hypoaesthesia [Unknown]
  - Apathy [Unknown]
  - Panic attack [Unknown]
  - Asthenia [Unknown]
  - Anxiety [Unknown]
  - Depression [Unknown]
  - Impulsive behaviour [Unknown]
  - Insomnia [Unknown]
  - Back pain [Unknown]
  - Spinal osteoarthritis [Unknown]
  - Muscle contractions involuntary [Recovered/Resolved]
  - Drug dose omission [Unknown]
  - Hypersomnia [Unknown]

NARRATIVE: CASE EVENT DATE: 201708
